FAERS Safety Report 16649357 (Version 1)
Quarter: 2019Q3

REPORT INFORMATION
  Report Type: Spontaneous
  Country: CA (occurrence: CA)
  Receive Date: 20190730
  Receipt Date: 20190730
  Transmission Date: 20191004
  Serious: Yes (Life-Threatening)
  Sender: FDA-Public Use
  Company Number: CA-TEVA-2019-CA-1084172

PATIENT
  Age: 66 Year
  Sex: Female
  Weight: 54 kg

DRUGS (11)
  1. EPIVAL [Interacting]
     Active Substance: DIVALPROEX SODIUM
     Indication: DEPRESSION
     Route: 065
  2. RISPERDAL [Interacting]
     Active Substance: RISPERIDONE
     Indication: DEPRESSION
     Route: 065
  3. SODIUM VALPROATE [Suspect]
     Active Substance: VALPROATE SODIUM
     Indication: DEPRESSION
  4. SODIUM VALPROATE [Suspect]
     Active Substance: VALPROATE SODIUM
     Indication: ANXIETY
     Route: 065
  5. VALPROATE SEMISODIUM [Interacting]
     Active Substance: DIVALPROEX SODIUM
     Indication: DEPRESSION
     Route: 065
  6. VALPROATE SEMISODIUM [Interacting]
     Active Substance: DIVALPROEX SODIUM
     Indication: ANXIETY
  7. CITALOPRAM HYDROBROMIDE. [Interacting]
     Active Substance: CITALOPRAM HYDROBROMIDE
     Indication: PRODUCT USED FOR UNKNOWN INDICATION
     Route: 065
  8. ABILIFY [Suspect]
     Active Substance: ARIPIPRAZOLE
     Indication: ANXIETY
     Route: 065
  9. RISPERDAL [Interacting]
     Active Substance: RISPERIDONE
     Indication: ANXIETY
  10. ABILIFY [Suspect]
     Active Substance: ARIPIPRAZOLE
     Indication: DEPRESSION
  11. EPIVAL [Interacting]
     Active Substance: DIVALPROEX SODIUM
     Indication: ANXIETY

REACTIONS (6)
  - Alopecia [Unknown]
  - Drug interaction [Unknown]
  - Weight increased [Unknown]
  - Hypersomnia [Unknown]
  - Off label use [Unknown]
  - Product use in unapproved indication [Unknown]
